FAERS Safety Report 10174158 (Version 2)
Quarter: 2014Q2

REPORT INFORMATION
  Report Type: Spontaneous
  Country: US (occurrence: US)
  Receive Date: 20140515
  Receipt Date: 20140604
  Transmission Date: 20141212
  Serious: Yes (Other)
  Sender: FDA-Public Use
  Company Number: US-SA-2014SA060753

PATIENT
  Age: 67 Year
  Sex: Female

DRUGS (2)
  1. LANTUS SOLOSTAR [Suspect]
     Indication: DIABETES MELLITUS
     Dosage: DOSE: AM 40 U AND PM 10 U
     Route: 058
     Dates: start: 1994
  2. SOLOSTAR [Concomitant]

REACTIONS (2)
  - Blindness [Unknown]
  - Drug administration error [Unknown]
